FAERS Safety Report 6453254-4 (Version None)
Quarter: 2009Q4

REPORT INFORMATION
  Report Type: 
  Country: None (occurrence: None)
  Receive Date: 20091117
  Receipt Date: 20090914
  Transmission Date: 20100525
  Serious: Yes (Hospitalization, Other)
  Sender: FDA-Public Use
  Company Number: 230021J09CAN

PATIENT
  Age: 41 Year
  Sex: Female

DRUGS (2)
  1. REBIF [Suspect]
     Indication: RELAPSING-REMITTING MULTIPLE SCLEROSIS
     Dosage: 44 MCG, 3 IN 1 WEEKS,  SUBCUTANEOUS
     Route: 058
     Dates: start: 20000901
  2. TYLENOL [Concomitant]

REACTIONS (11)
  - DYSPEPSIA [None]
  - ENZYME ABNORMALITY [None]
  - EYELID INJURY [None]
  - INFLUENZA LIKE ILLNESS [None]
  - INJECTION SITE PAIN [None]
  - INJECTION SITE URTICARIA [None]
  - KERATORHEXIS [None]
  - MYOCARDIAL INFARCTION [None]
  - SKIN LACERATION [None]
  - VAGINAL INFECTION [None]
  - WRONG TECHNIQUE IN DRUG USAGE PROCESS [None]
